FAERS Safety Report 4985221-1 (Version None)
Quarter: 2006Q2

REPORT INFORMATION
  Report Type: 
  Country: None (occurrence: None)
  Receive Date: 20060427
  Receipt Date: 20051021
  Transmission Date: 20061013
  Serious: Yes (Death, Hospitalization)
  Sender: FDA-Public Use
  Company Number: US-MERCK-0510USA08715

PATIENT
  Age: 63 Year
  Sex: Male
  Weight: 110 kg

DRUGS (12)
  1. VIOXX [Suspect]
     Indication: ARTHRITIS
     Route: 048
     Dates: start: 20011101, end: 20040501
  2. CARDIZEM [Concomitant]
     Route: 065
  3. TOPROL-XL [Concomitant]
     Route: 065
  4. METFORMIN [Concomitant]
     Route: 065
  5. ZOCOR [Concomitant]
     Route: 048
  6. AVANDIA [Concomitant]
     Route: 065
  7. ISOSORBIDE [Concomitant]
     Route: 065
  8. ALTACE [Concomitant]
     Route: 065
  9. NEXIUM [Concomitant]
     Route: 065
  10. VITAMINS (UNSPECIFIED) [Concomitant]
     Route: 065
  11. ASPIRIN [Concomitant]
     Route: 065
  12. NITROGLYCERIN [Concomitant]
     Route: 065

REACTIONS (8)
  - ABSCESS SOFT TISSUE [None]
  - ANGINA UNSTABLE [None]
  - CHEST PAIN [None]
  - DIZZINESS [None]
  - FATIGUE [None]
  - MYOCARDIAL INFARCTION [None]
  - SKIN LACERATION [None]
  - VASCULAR OCCLUSION [None]
